FAERS Safety Report 21917686 (Version 1)
Quarter: 2023Q1

REPORT INFORMATION
  Report Type: Report from Study
  Country: BE (occurrence: BE)
  Receive Date: 20230127
  Receipt Date: 20230127
  Transmission Date: 20230418
  Serious: Yes (Death)
  Sender: FDA-Public Use
  Company Number: BE-ABBVIE-4283677

PATIENT
  Age: 80 Year
  Sex: Male

DRUGS (7)
  1. CARBIDOPA\LEVODOPA [Suspect]
     Active Substance: CARBIDOPA\LEVODOPA
     Indication: Parkinson^s disease
     Route: 050
     Dates: start: 20180212
  2. CARBIDOPA\LEVODOPA [Suspect]
     Active Substance: CARBIDOPA\LEVODOPA
     Dosage: MD: 3.5 ML, CD: 3.4 ML/H, ED: 2.3 ML DURING 16 HOURS
     Route: 050
     Dates: start: 20220127, end: 20230123
  3. STALEVO [Concomitant]
     Active Substance: CARBIDOPA\ENTACAPONE\LEVODOPA
     Indication: Product used for unknown indication
     Dosage: FORM STRENGTH: 50 UNKNOWN, FREQUENCY TEXT: 11.00, 18.00?FORM STRENGTH: 100 UNKNOWN, FREQUENCY TEX...
  4. AZILECT [Concomitant]
     Active Substance: RASAGILINE MESYLATE
     Indication: Product used for unknown indication
  5. BENSERAZIDE\LEVODOPA [Concomitant]
     Active Substance: BENSERAZIDE\LEVODOPA
     Indication: Product used for unknown indication
     Dosage: FORM STRENGTH: 125?FORM STRENGTH UNITS: CAPSULE?FREQUENCY TEXT: AT BEDTIME
  6. BENSERAZIDE\LEVODOPA [Concomitant]
     Active Substance: BENSERAZIDE\LEVODOPA
     Indication: Product used for unknown indication
     Dosage: 0.5 TABLET? DISPERSIBLE?FORM STRENGTH: 125 TABLET?FREQUENCY TEXT: AT WAKE UP
  7. PRAMIPEXOLE [Concomitant]
     Active Substance: PRAMIPEXOLE
     Indication: Product used for unknown indication
     Dosage: 2.11 UNKNOWN?FREQUENCY TEXT: 6 UNKNOWN

REACTIONS (3)
  - Death [Fatal]
  - General physical health deterioration [Unknown]
  - Infection [Unknown]

NARRATIVE: CASE EVENT DATE: 20230123
